FAERS Safety Report 5210980-2 (Version None)
Quarter: 2006Q4

REPORT INFORMATION
  Report Type: 
  Country: None (occurrence: None)
  Receive Date: 20061130
  Receipt Date: 20060407
  Transmission Date: 20070319
  Serious: Yes (Other)
  Sender: FDA-Public Use
  Company Number: WAES 99051382

PATIENT
  Age: 49 Year
  Sex: Female
  Weight: 48.9885 kg

DRUGS (7)
  1. FOSAMAX [Suspect]
     Indication: OSTEOPOROSIS
     Dosage: 10 MG/DAILY/PO; 5 MG/DAILY/PO; 70 MG/WKY/PO
     Route: 048
     Dates: start: 19960201, end: 19990526
  2. FOSAMAX [Suspect]
     Indication: OSTEOPOROSIS
     Dosage: 10 MG/DAILY/PO; 5 MG/DAILY/PO; 70 MG/WKY/PO
     Route: 048
     Dates: start: 19990527, end: 20050101
  3. FOSAMAX [Suspect]
     Indication: OSTEOPOROSIS
     Dosage: 10 MG/DAILY/PO; 5 MG/DAILY/PO; 70 MG/WKY/PO
     Route: 048
     Dates: start: 20050101, end: 20050725
  4. CALCIUM (UNSPECIFIED) [Concomitant]
  5. VITAMIN B COMPLEX CAP [Concomitant]
  6. VITAMIN E [Concomitant]
  7. MULTI-VITAMINS [Concomitant]

REACTIONS (2)
  - EXOSTOSIS [None]
  - OSTEONECROSIS [None]
